FAERS Safety Report 14426021 (Version 1)
Quarter: 2018Q1

REPORT INFORMATION
  Report Type: Spontaneous
  Country: US (occurrence: US)
  Receive Date: 20180123
  Receipt Date: 20180123
  Transmission Date: 20180509
  Serious: No
  Sender: FDA-Public Use
  Company Number: US-SIGMAPHARM LABORATORIES, LLC-2017SIG00068

PATIENT
  Sex: Female

DRUGS (4)
  1. T3 AND T4 COMBINATION MEDICATION [Concomitant]
     Dosage: UNK, 1X/DAY
  2. LIOTHYRONINE SODIUM. [Suspect]
     Active Substance: LIOTHYRONINE SODIUM
     Dosage: 5 MCG, 1X/DAY (PM)
     Route: 048
     Dates: start: 201708, end: 201711
  3. T3 [Concomitant]
     Active Substance: LIOTHYRONINE SODIUM
     Dosage: UNK, 1X/DAY
  4. LIOTHYRONINE SODIUM. [Suspect]
     Active Substance: LIOTHYRONINE SODIUM
     Indication: THYROID HORMONE REPLACEMENT THERAPY
     Dosage: 10 MCG, 1X/DAY (AM)
     Route: 048
     Dates: start: 201708, end: 201711

REACTIONS (1)
  - Nausea [Recovered/Resolved]

NARRATIVE: CASE EVENT DATE: 2017
